FAERS Safety Report 4837665-6 (Version None)
Quarter: 2005Q4

REPORT INFORMATION
  Report Type: 
  Country: None (occurrence: None)
  Receive Date: 20051128
  Receipt Date: 20050929
  Transmission Date: 20060501
  Serious: Yes (Hospitalization)
  Sender: FDA-Public Use
  Company Number: US-MERCK-0510USA00194

PATIENT
  Age: 60 Year
  Sex: Female
  Weight: 86 kg

DRUGS (24)
  1. VIOXX [Suspect]
     Indication: JOINT INJURY
     Route: 048
     Dates: start: 20020501, end: 20041101
  2. K-DUR 10 [Concomitant]
     Route: 065
  3. CELEXA [Concomitant]
     Route: 065
  4. GLUCOPHAGE [Concomitant]
     Route: 065
  5. DIPHENOXYLATE [Concomitant]
     Route: 065
  6. CLONAZEPAM [Concomitant]
     Route: 065
  7. GLYBURIDE [Concomitant]
     Route: 065
  8. ZOLOFT [Concomitant]
     Route: 065
  9. [THERAPY UNSPECIFIED] [Concomitant]
     Route: 065
  10. LEVAQUIN [Concomitant]
     Route: 065
  11. METRONIDAZOLE [Concomitant]
     Route: 065
  12. [THERAPY UNSPECIFIED] [Concomitant]
     Route: 065
  13. LISINOPRIL [Concomitant]
     Route: 065
  14. CARBATROL [Concomitant]
     Route: 065
  15. BEXTRA [Concomitant]
     Route: 065
  16. LORAZEPAM [Concomitant]
     Route: 065
  17. TOPROL-XL [Concomitant]
     Route: 065
     Dates: start: 19950101
  18. CELEBREX [Concomitant]
     Route: 065
  19. PHENYTEK [Concomitant]
     Route: 065
  20. CARBAMAZEPINE [Concomitant]
     Route: 065
  21. PHENYTOIN [Concomitant]
     Route: 065
  22. ACETAMINOPHEN [Concomitant]
     Route: 065
  23. PROTONIX [Concomitant]
     Route: 065
  24. WARFARIN [Concomitant]
     Route: 065

REACTIONS (16)
  - ANAEMIA [None]
  - ANXIETY [None]
  - ARTHROPATHY [None]
  - BLOOD TRIGLYCERIDES INCREASED [None]
  - CEREBROVASCULAR ACCIDENT [None]
  - CONVULSION [None]
  - DIARRHOEA [None]
  - DIVERTICULUM [None]
  - ENCEPHALITIS [None]
  - GASTROOESOPHAGEAL REFLUX DISEASE [None]
  - HYPERLIPIDAEMIA [None]
  - LIMB INJURY [None]
  - OSTEOARTHRITIS [None]
  - PAIN IN EXTREMITY [None]
  - POST-TRAUMATIC STRESS DISORDER [None]
  - WEIGHT DECREASED [None]
